APPROVED DRUG PRODUCT: CHLORPROPAMIDE
Active Ingredient: CHLORPROPAMIDE
Strength: 100MG
Dosage Form/Route: TABLET;ORAL
Application: A089561 | Product #001
Applicant: DAVA PHARMACEUTICALS INC
Approved: Sep 4, 1987 | RLD: No | RS: No | Type: DISCN